FAERS Safety Report 22202264 (Version 1)
Quarter: 2023Q2

REPORT INFORMATION
  Report Type: Spontaneous
  Country: US (occurrence: None)
  Receive Date: 20230410
  Receipt Date: 20230410
  Transmission Date: 20230722
  Serious: Yes (Other)
  Sender: FDA-Public Use
  Company Number: None

PATIENT
  Sex: 0

DRUGS (1)
  1. VANCOMYCIN HYDROCHLORIDE [Suspect]
     Active Substance: VANCOMYCIN HYDROCHLORIDE
     Indication: Infection
     Dosage: OTHER FREQUENCY : ONCE (LOADING DOSE;?
     Route: 040
     Dates: start: 20230330, end: 20230330

REACTIONS (2)
  - Vancomycin infusion reaction [None]
  - Product quality issue [None]
